FAERS Safety Report 7769672-8 (Version None)
Quarter: 2011Q3

REPORT INFORMATION
  Report Type: 
  Country: None (occurrence: None)
  Receive Date: 20110922
  Receipt Date: 20110418
  Transmission Date: 20111222
  Serious: No
  Sender: FDA-Public Use
  Company Number: US-ASTRAZENECA-2007UW25661

PATIENT
  Age: 17697 Day
  Sex: Male
  Weight: 137 kg

DRUGS (12)
  1. GEODON [Concomitant]
  2. SEROQUEL [Suspect]
     Indication: OBSESSIVE-COMPULSIVE DISORDER
     Dosage: 200 TO 300 MG
     Route: 048
     Dates: start: 20041229
  3. SEROQUEL [Suspect]
     Route: 048
     Dates: start: 20051201
  4. ABILIFY [Concomitant]
     Dates: start: 20041229, end: 20080810
  5. SEROQUEL [Suspect]
     Indication: BIPOLAR DISORDER
     Dosage: 200 TO 300 MG
     Route: 048
     Dates: start: 20041229
  6. SEROQUEL [Suspect]
     Route: 048
     Dates: start: 20051201
  7. GEMFIBROZIL [Concomitant]
     Dates: start: 20070514
  8. SEROQUEL [Suspect]
     Indication: SLEEP DISORDER
     Dosage: 200 TO 300 MG
     Route: 048
     Dates: start: 20041229
  9. SEROQUEL [Suspect]
     Route: 048
     Dates: start: 20051201
  10. RISPERDAL [Concomitant]
  11. CLONAZEPAM [Concomitant]
  12. TEMAZEPAM [Concomitant]
     Dates: start: 20051201

REACTIONS (3)
  - OBESITY [None]
  - TYPE 1 DIABETES MELLITUS [None]
  - TYPE 2 DIABETES MELLITUS [None]
